FAERS Safety Report 8593257-7 (Version None)
Quarter: 2012Q3

REPORT INFORMATION
  Report Type: 
  Country: None (occurrence: None)
  Receive Date: 20120814
  Receipt Date: 20120808
  Transmission Date: 20120928
  Serious: No
  Sender: FDA-Public Use
  Company Number: US-TEVA-353002USA

PATIENT
  Sex: Female

DRUGS (4)
  1. LOMOTIL [Concomitant]
     Indication: IRRITABLE BOWEL SYNDROME
     Dosage: 5 MILLIGRAM DAILY;
     Route: 048
     Dates: start: 20120301
  2. NUVIGIL [Suspect]
     Indication: FATIGUE
     Route: 048
     Dates: start: 20120615
  3. ANTIHISTAMINES [Concomitant]
     Indication: SLEEP DISORDER
  4. THYROID TAB [Concomitant]
     Indication: HYPOTHYROIDISM
     Dosage: 90 MILLIGRAM DAILY;
     Route: 048
     Dates: start: 20060101

REACTIONS (4)
  - INSOMNIA [None]
  - OFF LABEL USE [None]
  - HEADACHE [None]
  - NAUSEA [None]
